FAERS Safety Report 21642739 (Version 4)
Quarter: 2023Q2

REPORT INFORMATION
  Report Type: Spontaneous
  Country: US (occurrence: US)
  Receive Date: 20221125
  Receipt Date: 20230406
  Transmission Date: 20230722
  Serious: No
  Sender: FDA-Public Use
  Company Number: US-SA-SAC20221121001495

PATIENT
  Age: 2 Year
  Sex: Female

DRUGS (2)
  1. DUPIXENT [Suspect]
     Active Substance: DUPILUMAB
     Indication: Eczema
     Dosage: 200MG, OTHER
     Route: 058
     Dates: start: 202208
  2. DUPIXENT [Suspect]
     Active Substance: DUPILUMAB
     Indication: Dermatitis atopic

REACTIONS (11)
  - Eye pain [Unknown]
  - Eczema [Unknown]
  - Alopecia [Recovering/Resolving]
  - Periorbital swelling [Unknown]
  - Skin discolouration [Unknown]
  - Skin exfoliation [Unknown]
  - Eye swelling [Unknown]
  - Eye irritation [Unknown]
  - Dermatitis [Unknown]
  - Pruritus [Unknown]
  - Eyelid margin crusting [Unknown]

NARRATIVE: CASE EVENT DATE: 20230110
